FAERS Safety Report 14119254 (Version 1)
Quarter: 2017Q4

REPORT INFORMATION
  Report Type: Spontaneous
  Country: US (occurrence: US)
  Receive Date: 20171024
  Receipt Date: 20171024
  Transmission Date: 20180321
  Serious: No
  Sender: FDA-Public Use
  Company Number: US-PFIZER INC-2016484910

PATIENT
  Age: 69 Year
  Sex: Female

DRUGS (1)
  1. IBRANCE [Suspect]
     Active Substance: PALBOCICLIB
     Indication: BREAST CANCER FEMALE
     Dosage: 125 MG, CYCLIC; (ONE TABLET DAILY FOR 21 DAYS, 7 DAYS OFF EVERY 28 DAYS)
     Route: 048

REACTIONS (3)
  - Fatigue [Unknown]
  - Nail disorder [Unknown]
  - Alopecia [Unknown]
